FAERS Safety Report 5823847-3 (Version None)
Quarter: 2008Q3

REPORT INFORMATION
  Report Type: 
  Country: None (occurrence: None)
  Receive Date: 20080725
  Receipt Date: 20080715
  Transmission Date: 20090109
  Serious: Yes (Other)
  Sender: FDA-Public Use
  Company Number: DE-PFIZER INC-2008060462

PATIENT
  Sex: Male

DRUGS (3)
  1. CHANTIX [Suspect]
     Route: 048
  2. PANTOPRAZOLE SODIUM [Concomitant]
  3. SINUPRET [Concomitant]

REACTIONS (4)
  - BRONCHIAL OBSTRUCTION [None]
  - GASTRIC DISORDER [None]
  - HEADACHE [None]
  - NASAL CONGESTION [None]
